APPROVED DRUG PRODUCT: PEPCID PRESERVATIVE FREE
Active Ingredient: FAMOTIDINE
Strength: 10MG/ML **Federal Register determination that product was not discontinued or withdrawn for safety or effectiveness reasons**
Dosage Form/Route: INJECTABLE;INJECTION
Application: N019510 | Product #004
Applicant: MERCK RESEARCH LABORATORIES DIV MERCK CO INC
Approved: Nov 4, 1986 | RLD: Yes | RS: No | Type: DISCN